FAERS Safety Report 5947315-3 (Version None)
Quarter: 2008Q4

REPORT INFORMATION
  Report Type: 
  Country: None (occurrence: None)
  Receive Date: 20081106
  Receipt Date: 20081020
  Transmission Date: 20090506
  Serious: Yes (Death, Other)
  Sender: FDA-Public Use
  Company Number: 08-038B

PATIENT
  Age: 32 Year
  Sex: Male
  Weight: 82.2 kg

DRUGS (7)
  1. LORTAB [Suspect]
     Indication: ANALGESIA
     Dosage: 7.5MG ORALLY
     Route: 048
     Dates: start: 20061016, end: 20080404
  2. ERBITUX [Suspect]
     Indication: SQUAMOUS CELL CARCINOMA
     Dosage: 250 MG/M2 ONCE, IV
     Route: 042
     Dates: start: 20080402, end: 20080402
  3. ERBITUX [Suspect]
     Indication: SQUAMOUS CELL CARCINOMA
     Dosage: 430 MG
     Dates: start: 20080402
  4. DURAGESIC-100 [Suspect]
     Indication: ANALGESIA
     Dosage: 100 MCG
     Dates: start: 20061107, end: 20080404
  5. METHADONE HCL [Suspect]
     Indication: ANALGESIA
     Dosage: ORALLY
     Route: 048
     Dates: start: 20061114, end: 20080404
  6. FENTANYL [Concomitant]
  7. METHADONE HCL [Concomitant]

REACTIONS (3)
  - ANOXIC ENCEPHALOPATHY [None]
  - CARDIO-RESPIRATORY ARREST [None]
  - FALL [None]
